FAERS Safety Report 10435445 (Version 3)
Quarter: 2014Q4

REPORT INFORMATION
  Report Type: Report from Study
  Country: US (occurrence: US)
  Receive Date: 20140908
  Receipt Date: 20141023
  Transmission Date: 20150528
  Serious: Yes (Other)
  Sender: FDA-Public Use
  Company Number: US-BIOGENIDEC-2014BI089963

PATIENT
  Sex: Female

DRUGS (1)
  1. AVONEX [Suspect]
     Active Substance: INTERFERON BETA-1A
     Indication: MULTIPLE SCLEROSIS
     Route: 030

REACTIONS (8)
  - Vulval cancer [Not Recovered/Not Resolved]
  - Uterine cancer [Unknown]
  - Red blood cell morphology abnormal [Not Recovered/Not Resolved]
  - Cervix carcinoma [Unknown]
  - Cardiac arrest [Not Recovered/Not Resolved]
  - Seizure [Not Recovered/Not Resolved]
  - Central nervous system lesion [Not Recovered/Not Resolved]
  - Injection site hypersensitivity [Recovered/Resolved with Sequelae]

NARRATIVE: CASE EVENT DATE: 2013
